FAERS Safety Report 4627499-X (Version None)
Quarter: 2005Q2

REPORT INFORMATION
  Report Type: 
  Country: None (occurrence: None)
  Receive Date: 20050405
  Receipt Date: 20050324
  Transmission Date: 20051028
  Serious: Yes (Hospitalization, Other)
  Sender: FDA-Public Use
  Company Number: 2004-12-0369

PATIENT
  Age: 47 Year
  Sex: Female

DRUGS (2)
  1. TEMODAR [Suspect]
     Dosage: 75 MG/M^2 ORAL
     Route: 048
     Dates: start: 20041012, end: 20041109
  2. RADIATION THERAPY [Concomitant]

REACTIONS (5)
  - FEBRILE NEUTROPENIA [None]
  - NEOPLASM PROGRESSION [None]
  - PANCYTOPENIA [None]
  - PSEUDOMONAS INFECTION [None]
  - RASH [None]
